FAERS Safety Report 4666615-0 (Version None)
Quarter: 2005Q2

REPORT INFORMATION
  Report Type: 
  Country: None (occurrence: None)
  Receive Date: 20050519
  Receipt Date: 20050207
  Transmission Date: 20051028
  Serious: Yes (Other)
  Sender: FDA-Public Use
  Company Number: PHBS2005BE02089

PATIENT
  Age: 71 Year
  Sex: Female

DRUGS (9)
  1. ZOMETA [Suspect]
     Indication: METASTASES TO BONE
     Dosage: 4 MG, UNK
     Dates: start: 20020910
  2. EPIRUBICIN [Concomitant]
     Dosage: 9 CYCLES
     Dates: start: 20020701, end: 20030114
  3. NAVELBINE [Concomitant]
     Dates: start: 20040401
  4. HERCEPTIN [Concomitant]
     Dates: start: 20040401
  5. RADIOTHERAPY [Concomitant]
     Dates: start: 20041101
  6. EUCARBON [Concomitant]
     Dates: start: 20010301
  7. MOTILIUM [Concomitant]
     Dates: start: 20010301
  8. LEXOTAN [Concomitant]
  9. AREDIA [Suspect]
     Indication: METASTASES TO BONE
     Dosage: 90 MG, UNK
     Dates: start: 20020701

REACTIONS (3)
  - OSTEONECROSIS [None]
  - TOOTH EXTRACTION [None]
  - WOUND DEBRIDEMENT [None]
